FAERS Safety Report 23944152 (Version 1)
Quarter: 2024Q2

REPORT INFORMATION
  Report Type: Report from Study
  Country: GB (occurrence: GB)
  Receive Date: 20240606
  Receipt Date: 20240606
  Transmission Date: 20240716
  Serious: Yes (Other)
  Sender: FDA-Public Use
  Company Number: GB-SANDOZ-SDZ2024GB040569

PATIENT
  Sex: Female

DRUGS (2)
  1. HYRIMOZ [Suspect]
     Active Substance: ADALIMUMAB-ADAZ
     Dosage: 40 MG, EOW
     Route: 058
     Dates: start: 20240407
  2. HYRIMOZ [Suspect]
     Active Substance: ADALIMUMAB-ADAZ
     Indication: Psoriatic arthropathy
     Dosage: 40 MG, EOW 40MG/0.4 ML SOLUTION FOR INJECTION PRE-FILLED PENS
     Route: 058

REACTIONS (2)
  - Orthopaedic procedure [Unknown]
  - Laryngitis [Unknown]
